FAERS Safety Report 7460418-X (Version None)
Quarter: 2011Q2

REPORT INFORMATION
  Report Type: 
  Country: None (occurrence: None)
  Receive Date: 20110505
  Receipt Date: 20110426
  Transmission Date: 20111010
  Serious: Yes (Hospitalization)
  Sender: FDA-Public Use
  Company Number: B0711468A

PATIENT
  Age: 81 Year
  Sex: Female

DRUGS (1)
  1. PAROXETINE HCL [Suspect]
     Indication: DEPRESSION
     Dosage: 10MG PER DAY
     Route: 065

REACTIONS (11)
  - PRIMARY HYPOTHYROIDISM [None]
  - MYXOEDEMA [None]
  - HYPOREFLEXIA [None]
  - GENERAL PHYSICAL HEALTH DETERIORATION [None]
  - MALAISE [None]
  - HYPONATRAEMIA [None]
  - BRADYPHRENIA [None]
  - ANAEMIA [None]
  - INAPPROPRIATE ANTIDIURETIC HORMONE SECRETION [None]
  - SOMNOLENCE [None]
  - ASTHENIA [None]
